FAERS Safety Report 15232368 (Version 2)
Quarter: 2018Q3

REPORT INFORMATION
  Report Type: Report from Study
  Country: CA (occurrence: CA)
  Receive Date: 20180802
  Receipt Date: 20180926
  Transmission Date: 20181010
  Serious: Yes (Other)
  Sender: FDA-Public Use
  Company Number: CA-TAKEDA-2018TUS005971

PATIENT
  Age: 66 Year
  Sex: Male

DRUGS (3)
  1. VITAMIN D [Concomitant]
     Active Substance: CHOLECALCIFEROL
     Dosage: UNK UNK, BID
  2. MEZAVANT [Concomitant]
     Active Substance: MESALAMINE
     Dosage: 1.2 MG, QD
  3. VEDOLIZUMAB [Suspect]
     Active Substance: VEDOLIZUMAB
     Indication: COLITIS ULCERATIVE
     Dosage: 300 MG, UNK
     Route: 042
     Dates: start: 20180222

REACTIONS (11)
  - Pain [Unknown]
  - Rhinorrhoea [Unknown]
  - Pruritus [Unknown]
  - Coronary artery disease [Not Recovered/Not Resolved]
  - Dyspnoea [Unknown]
  - Dysuria [Unknown]
  - Cough [Unknown]
  - Rash pruritic [Unknown]
  - Myalgia [Unknown]
  - Electrocardiogram abnormal [Not Recovered/Not Resolved]
  - Fatigue [Unknown]

NARRATIVE: CASE EVENT DATE: 2018
